FAERS Safety Report 10986959 (Version 1)
Quarter: 2015Q1

REPORT INFORMATION
  Report Type: Spontaneous
  Country: US (occurrence: None)
  Receive Date: 20150304
  Receipt Date: 20150304
  Transmission Date: 20150721
  Serious: Yes (Hospitalization)
  Sender: FDA-Public Use
  Company Number: 2014TUS008072

PATIENT
  Age: 82 Year
  Sex: Male

DRUGS (1)
  1. LANSOPRAZOLE. [Suspect]
     Active Substance: LANSOPRAZOLE
     Indication: BARRETT^S OESOPHAGUS
     Dates: start: 201409, end: 201409

REACTIONS (3)
  - Drug ineffective [None]
  - Malaise [None]
  - Product use issue [None]

NARRATIVE: CASE EVENT DATE: 201409
